FAERS Safety Report 10328472 (Version 2)
Quarter: 2014Q3

REPORT INFORMATION
  Report Type: Spontaneous
  Country: US (occurrence: None)
  Receive Date: 20140717
  Receipt Date: 20140806
  Transmission Date: 20150326
  Serious: Yes (Life-Threatening, Hospitalization)
  Sender: FDA-Public Use
  Company Number: 2014-JP-0042

PATIENT
  Age: 70 Year
  Sex: Female

DRUGS (2)
  1. FARESTON [Suspect]
     Active Substance: TOREMIFENE CITRATE
     Indication: BREAST CANCER
     Dosage: 40 MG X 1 PER 1 DAY, ORAL 6 WEEK 6 DAY
     Route: 048
     Dates: start: 20140217, end: 20140405
  2. XYZAL (LEVOCETIRIZINE HYDROCHLORIDE) [Concomitant]

REACTIONS (4)
  - Hepatitis fulminant [None]
  - Liver disorder [None]
  - Asthenia [None]
  - Pruritus [None]

NARRATIVE: CASE EVENT DATE: 20140405
